FAERS Safety Report 7959361-9 (Version None)
Quarter: 2011Q4

REPORT INFORMATION
  Report Type: 
  Country: None (occurrence: None)
  Receive Date: 20111206
  Receipt Date: 20111202
  Transmission Date: 20120403
  Serious: Yes (Other)
  Sender: FDA-Public Use
  Company Number: JP-PFIZER INC-2011266355

PATIENT
  Age: 80 Year
  Sex: Female

DRUGS (9)
  1. FAMOTIDINE [Concomitant]
     Dosage: 20 MG, 2X/DAY
     Route: 048
  2. LYRICA [Suspect]
     Dosage: 75 MG, SINGLE
     Route: 048
     Dates: start: 20111028, end: 20111028
  3. WARKMIN [Concomitant]
     Dosage: 0.5 UG, 2X/DAY
     Route: 048
     Dates: start: 20070609
  4. MUCOSTA [Concomitant]
     Dosage: 1 DF, 3X/DAY
     Route: 048
     Dates: start: 20071228
  5. AMLODIPINE BESILATE/CANDESARTAN CILEXETIL [Concomitant]
     Dosage: 1 DF, 1X/DAY ([AMLODIPINE BESILATE 5 MG, CANDESARTAN CILEXETIL 8 MG])
     Route: 048
     Dates: start: 20110204
  6. ZOLPIDEM [Concomitant]
     Dosage: 5 MG, 1X/DAY
     Route: 048
     Dates: start: 20090828
  7. SOLETON [Concomitant]
     Dosage: 1 DF, 2X/DAY
     Route: 048
     Dates: start: 20050913
  8. GASMOTIN [Concomitant]
     Dosage: 1 DF, 3X/DAY
     Route: 048
  9. ALOSENN [Concomitant]
     Dosage: 2 G, 1X/DAY
     Route: 048

REACTIONS (1)
  - SENSE OF OPPRESSION [None]
